FAERS Safety Report 21296581 (Version 1)
Quarter: 2022Q3

REPORT INFORMATION
  Report Type: Spontaneous
  Country: BE (occurrence: None)
  Receive Date: 20220906
  Receipt Date: 20220906
  Transmission Date: 20221026
  Serious: Yes (Hospitalization)
  Sender: FDA-Public Use
  Company Number: 2022A300339

PATIENT
  Age: 47 Year
  Sex: Female
  Weight: 62 kg

DRUGS (6)
  1. LYNPARZA [Suspect]
     Active Substance: OLAPARIB
     Indication: Ovarian cancer
     Dosage: 2CO 2X/DAY UNKNOWN
     Route: 048
     Dates: start: 20190104, end: 20210211
  2. PACLITAXEL [Suspect]
     Active Substance: PACLITAXEL
     Dosage: UNKNOWN: WEEKLY
     Route: 065
     Dates: start: 20210301, end: 20211028
  3. CYCLOPHOSPHAMIDE [Suspect]
     Active Substance: CYCLOPHOSPHAMIDE
     Dosage: UNKNOWN UNKNOWN
     Route: 065
     Dates: start: 20211010, end: 20211211
  4. CARBOPLATIN [Suspect]
     Active Substance: CARBOPLATIN
     Dosage: UNKNOWN, WEEKLY
     Route: 065
     Dates: start: 20210301, end: 20211028
  5. PANTOPRAZOLE SODIUM [Concomitant]
     Active Substance: PANTOPRAZOLE SODIUM
     Dosage: UNKNOWN UNKNOWN
     Route: 065
  6. DAFALGAN [Concomitant]
     Active Substance: ACETAMINOPHEN
     Dosage: UNKNOWN UNKNOWN
     Route: 065

REACTIONS (6)
  - TP53 gene mutation [Not Recovered/Not Resolved]
  - Neurotoxicity [Unknown]
  - Pancytopenia [Not Recovered/Not Resolved]
  - Acute myeloid leukaemia [Not Recovered/Not Resolved]
  - Acute megakaryocytic leukaemia [Not Recovered/Not Resolved]
  - Haematotoxicity [Not Recovered/Not Resolved]

NARRATIVE: CASE EVENT DATE: 20211028
